FAERS Safety Report 8110477-6 (Version None)
Quarter: 2012Q1

REPORT INFORMATION
  Report Type: 
  Country: None (occurrence: None)
  Receive Date: 20120202
  Receipt Date: 20120125
  Transmission Date: 20120608
  Serious: Yes (Other)
  Sender: FDA-Public Use
  Company Number: US-ASTRAZENECA-2010SE46909

PATIENT
  Age: 50 Year
  Sex: Female

DRUGS (2)
  1. OMEPRAZOLE [Suspect]
     Route: 048
  2. NEXIUM [Suspect]
     Route: 048

REACTIONS (9)
  - MALAISE [None]
  - VOMITING [None]
  - NAUSEA [None]
  - DRUG DOSE OMISSION [None]
  - FOOT FRACTURE [None]
  - DYSPEPSIA [None]
  - DIARRHOEA [None]
  - CATARACT OPERATION [None]
  - GASTRIC DISORDER [None]
